FAERS Safety Report 11599602 (Version 1)
Quarter: 2015Q3

REPORT INFORMATION
  Report Type: Spontaneous
  Country: US (occurrence: US)
  Receive Date: 20150916
  Receipt Date: 20150916
  Transmission Date: 20151125
  Serious: No
  Sender: FDA-Public Use
  Company Number: US-ELI_LILLY_AND_COMPANY-US200710007000

PATIENT
  Age: 79 Year
  Sex: Female

DRUGS (7)
  1. CARDIZEM [Concomitant]
     Active Substance: DILTIAZEM HYDROCHLORIDE
     Indication: ARRHYTHMIA
     Dosage: 180 MG, DAILY (1/D)
     Dates: start: 200709
  2. ARMOUR THYROID [Concomitant]
     Active Substance: THYROID, PORCINE\THYROID, UNSPECIFIED
  3. TIMACOR [Concomitant]
     Dates: end: 200709
  4. FORTEO [Suspect]
     Active Substance: TERIPARATIDE
     Dosage: UNK, EACH EVENING
     Dates: start: 200711
  5. COUMADIN [Concomitant]
     Active Substance: WARFARIN SODIUM
  6. FORTEO [Suspect]
     Active Substance: TERIPARATIDE
     Indication: OSTEOPOROSIS
     Dosage: UNK, UNK
     Dates: start: 20071003, end: 200710
  7. TIMACOR [Concomitant]

REACTIONS (7)
  - Dizziness [Recovered/Resolved]
  - Arrhythmia [Recovered/Resolved]
  - Joint swelling [Not Recovered/Not Resolved]
  - Contusion [Recovering/Resolving]
  - Oedema peripheral [Recovered/Resolved]
  - Oedema [Recovered/Resolved]
  - Malaise [Unknown]

NARRATIVE: CASE EVENT DATE: 2007
